FAERS Safety Report 20570729 (Version 1)
Quarter: 2022Q1

REPORT INFORMATION
  Report Type: Spontaneous
  Country: DE (occurrence: DE)
  Receive Date: 20220309
  Receipt Date: 20220309
  Transmission Date: 20220424
  Serious: Yes (Congenital Anomaly, Other)
  Sender: FDA-Public Use
  Company Number: DE-EMBRYOTOX-202103869

PATIENT
  Age: 1 Day
  Sex: Male

DRUGS (4)
  1. LAMOTRIGINE [Suspect]
     Active Substance: LAMOTRIGINE
     Indication: Bipolar disorder
     Dosage: 125 MILLIGRAM DAILY; 125 [MG/D (50-0-75 MG/D) ]
     Route: 064
     Dates: start: 20210214, end: 20211110
  2. INSULIN GLARGINE [Concomitant]
     Active Substance: INSULIN GLARGINE
     Indication: Gestational diabetes
     Dosage: 14 IU (INTERNATIONAL UNIT) DAILY;
     Route: 064
     Dates: start: 20210914, end: 20211110
  3. CYTOTEC [Concomitant]
     Active Substance: MISOPROSTOL
     Indication: Labour induction
     Route: 064
     Dates: start: 20211108, end: 20211108
  4. BOOSTRIX [Concomitant]
     Active Substance: TETANUS TOXOID, REDUCED DIPHTHERIA TOXOID AND ACELLULAR PERTUSSIS VACCINE, ADSORBED ANTIGENS
     Indication: Immunisation
     Route: 064
     Dates: start: 20210927, end: 20210927

REACTIONS (7)
  - Patent ductus arteriosus [Recovered/Resolved]
  - Atrial septal defect [Unknown]
  - Pulmonary hypoplasia [Unknown]
  - Neonatal respiratory arrest [Recovered/Resolved]
  - Newborn persistent pulmonary hypertension [Unknown]
  - Congenital diaphragmatic hernia [Unknown]
  - Foetal exposure during pregnancy [Unknown]

NARRATIVE: CASE EVENT DATE: 20210214
